FAERS Safety Report 13969576 (Version 2)
Quarter: 2017Q3

REPORT INFORMATION
  Report Type: Spontaneous
  Country: US (occurrence: US)
  Receive Date: 20170914
  Receipt Date: 20170920
  Transmission Date: 20171128
  Serious: Yes (Other)
  Sender: FDA-Public Use
  Company Number: US-PFIZER INC-2017392348

PATIENT
  Age: 69 Year
  Sex: Female
  Weight: 59 kg

DRUGS (4)
  1. CYMBALTA [Concomitant]
     Active Substance: DULOXETINE HYDROCHLORIDE
     Dosage: UNK [1 TAB PO QD FOR TWO WEEKS, THEN 2 TABS PO QD FOR TWO WEEKS]
     Route: 048
  2. LYRICA [Suspect]
     Active Substance: PREGABALIN
     Indication: FIBROMYALGIA
     Dosage: 75 MG, 3X/DAY
     Route: 048
     Dates: start: 20150928
  3. LYRICA [Suspect]
     Active Substance: PREGABALIN
     Dosage: 75 MG, 2X/DAY
  4. XANAX [Concomitant]
     Active Substance: ALPRAZOLAM
     Dosage: 1 MG, UNK

REACTIONS (34)
  - Sinusitis [Unknown]
  - Abdominal distension [Unknown]
  - Muscle spasms [Unknown]
  - Anaemia [Unknown]
  - Asthenia [Unknown]
  - Pain in extremity [Unknown]
  - Depression [Unknown]
  - Temperature intolerance [Unknown]
  - Condition aggravated [Unknown]
  - Abdominal pain [Unknown]
  - Constipation [Unknown]
  - Joint swelling [Unknown]
  - Myalgia [Unknown]
  - Anxiety [Unknown]
  - Weight increased [Unknown]
  - Fall [Not Recovered/Not Resolved]
  - Libido decreased [Unknown]
  - Insomnia [Unknown]
  - Fatigue [Unknown]
  - Sleep disorder [Unknown]
  - Arthritis [Unknown]
  - Eye pain [Recovering/Resolving]
  - Cerebrovascular accident [Unknown]
  - Contusion [Not Recovered/Not Resolved]
  - Back pain [Unknown]
  - Arthralgia [Unknown]
  - Musculoskeletal stiffness [Unknown]
  - Gait disturbance [Unknown]
  - Pain [Unknown]
  - Back injury [Not Recovered/Not Resolved]
  - Chills [Unknown]
  - Malaise [Unknown]
  - Muscular weakness [Unknown]
  - Headache [Unknown]
